FAERS Safety Report 8921355 (Version 1)
Quarter: 2012Q4

REPORT INFORMATION
  Report Type: 
  Country: BR (occurrence: BR)
  Receive Date: 20121121
  Receipt Date: 20121121
  Transmission Date: 20130627
  Serious: Yes (Hospitalization)
  Sender: FDA-Public Use
  Company Number: BR-BRISTOL-MYERS SQUIBB COMPANY-17131301

PATIENT
  Age: 36 Year
  Sex: Female
  Weight: 85 kg

DRUGS (1)
  1. LYSODREN [Suspect]
     Indication: ADRENAL NEOPLASM
     Dosage: ince 1 year and 2 months ago (early 2011)
     Route: 048
     Dates: start: 2011

REACTIONS (2)
  - Adrenalectomy [Unknown]
  - Nephrectomy [Unknown]
